FAERS Safety Report 19815810 (Version 1)
Quarter: 2021Q3

REPORT INFORMATION
  Report Type: Spontaneous
  Country: IL (occurrence: US)
  Receive Date: 20210909
  Receipt Date: 20210909
  Transmission Date: 20211014
  Serious: Yes (Other)
  Sender: FDA-Public Use
  Company Number: IL-PFIZER INC-202101137776

PATIENT
  Age: 9 Year
  Sex: Male

DRUGS (2)
  1. KEYTRUDA [Suspect]
     Active Substance: PEMBROLIZUMAB
     Indication: NEOPLASM MALIGNANT
  2. IBRANCE [Suspect]
     Active Substance: PALBOCICLIB
     Indication: NEOPLASM MALIGNANT
     Dosage: UNK, ALTERNATE DAY (EVERY OTHER DAY, FOR ABOUT A MONTH)

REACTIONS (3)
  - Intra-abdominal fluid collection [Unknown]
  - Product use issue [Unknown]
  - Off label use [Unknown]
